FAERS Safety Report 12340109 (Version 1)
Quarter: 2016Q2

REPORT INFORMATION
  Report Type: Spontaneous
  Country: US (occurrence: US)
  Receive Date: 20160506
  Receipt Date: 20160506
  Transmission Date: 20160815
  Serious: No
  Sender: FDA-Public Use
  Company Number: US-ASTRAZENECA-2016SE33527

PATIENT
  Age: 49 Year
  Sex: Male
  Weight: 70.3 kg

DRUGS (3)
  1. SEROQUEL XR [Suspect]
     Active Substance: QUETIAPINE FUMARATE
     Indication: SCHIZOPHRENIA
     Route: 048
     Dates: start: 2015
  2. IRON [Concomitant]
     Active Substance: IRON
     Route: 048
     Dates: start: 2014
  3. SEROQUEL XR [Suspect]
     Active Substance: QUETIAPINE FUMARATE
     Indication: SCHIZOPHRENIA
     Route: 048

REACTIONS (5)
  - Heart rate increased [Unknown]
  - Drug ineffective [Unknown]
  - Sleep disorder due to a general medical condition [Unknown]
  - Blood iron decreased [Unknown]
  - Insomnia [Unknown]

NARRATIVE: CASE EVENT DATE: 2014
